FAERS Safety Report 13544176 (Version 2)
Quarter: 2017Q2

REPORT INFORMATION
  Report Type: Spontaneous
  Country: JP (occurrence: JP)
  Receive Date: 20170515
  Receipt Date: 20170612
  Transmission Date: 20170830
  Serious: Yes (Other)
  Sender: FDA-Public Use
  Company Number: JP-BRISTOL-MYERS SQUIBB COMPANY-BMS-2017-041248

PATIENT
  Sex: Male

DRUGS (2)
  1. MARDUOX [Concomitant]
     Indication: PARAPSORIASIS
     Dosage: 1 G, QD, EXTERNAL
     Route: 050
     Dates: start: 20170113
  2. KENACORT-A [Suspect]
     Active Substance: TRIAMCINOLONE
     Indication: PARAPSORIASIS
     Dosage: 40 MG, QMO
     Route: 030
     Dates: start: 20170113, end: 20170307

REACTIONS (1)
  - Chorioretinopathy [Recovering/Resolving]
